FAERS Safety Report 19878606 (Version 2)
Quarter: 2025Q4

REPORT INFORMATION
  Report Type: Spontaneous
  Country: US (occurrence: US)
  Receive Date: 20210923
  Receipt Date: 20251021
  Transmission Date: 20260118
  Serious: Yes (Hospitalization)
  Sender: ELI LILLY AND COMPANY
  Company Number: US-ELI_LILLY_AND_COMPANY-US202109008161

PATIENT
  Age: 78 Year
  Sex: Female

DRUGS (4)
  1. BASAGLAR [Suspect]
     Active Substance: INSULIN GLARGINE
     Indication: Product used for unknown indication
     Dosage: UNK UNK, UNKNOWN
     Route: 065
  2. HUMALOG [Suspect]
     Active Substance: INSULIN LISPRO
     Indication: Product used for unknown indication
     Dosage: UNK UNK, UNKNOWN
     Route: 065
  3. INSULIN LISPRO [Suspect]
     Active Substance: INSULIN LISPRO
     Indication: Product used for unknown indication
     Dosage: 9 U, DAILY
     Route: 065
  4. SEMGLEE (INSULIN GLARGINE) [Concomitant]
     Active Substance: INSULIN GLARGINE
     Indication: Product used for unknown indication
     Dosage: 12 U, UNKNOWN
     Route: 065

REACTIONS (10)
  - Cystitis [Recovered/Resolved]
  - Sepsis [Recovered/Resolved]
  - Blood glucose increased [Unknown]
  - Memory impairment [Unknown]
  - Illness [Unknown]
  - Skin sensitisation [Unknown]
  - Blood glucose decreased [Unknown]
  - Drug ineffective [Unknown]
  - Drug ineffective [Unknown]
  - Product prescribing error [Unknown]
